FAERS Safety Report 5804121-8 (Version None)
Quarter: 2008Q3

REPORT INFORMATION
  Report Type: 
  Country: None (occurrence: None)
  Receive Date: 20080707
  Receipt Date: 20080707
  Transmission Date: 20090109
  Serious: Yes (Disabling, Other)
  Sender: FDA-Public Use
  Company Number: None

PATIENT
  Age: 58 Year
  Sex: Female
  Weight: 42.6381 kg

DRUGS (1)
  1. KLONOPIN [Suspect]
     Indication: DEPRESSION
     Dosage: ONE TABLET  3 TIMES A DAY PO
     Route: 048
     Dates: start: 20070503, end: 20080707

REACTIONS (17)
  - ABNORMAL BEHAVIOUR [None]
  - ACTIVITIES OF DAILY LIVING IMPAIRED [None]
  - ANXIETY [None]
  - APATHY [None]
  - ASTHENIA [None]
  - DEPRESSION [None]
  - DIZZINESS [None]
  - DRY MOUTH [None]
  - FATIGUE [None]
  - GAIT DISTURBANCE [None]
  - LIBIDO DECREASED [None]
  - MYALGIA [None]
  - PANIC ATTACK [None]
  - RESTLESSNESS [None]
  - SOMNOLENCE [None]
  - TENSION [None]
  - TREMOR [None]
